FAERS Safety Report 16821220 (Version 2)
Quarter: 2020Q1

REPORT INFORMATION
  Report Type: Spontaneous
  Country: US (occurrence: US)
  Receive Date: 20190918
  Receipt Date: 20200110
  Transmission Date: 20200409
  Serious: Yes (Hospitalization, Other)
  Sender: FDA-Public Use
  Company Number: US-ABBVIE-19K-163-2923638-00

PATIENT
  Age: 55 Year
  Sex: Male
  Weight: 94.43 kg

DRUGS (4)
  1. HUMIRA [Suspect]
     Active Substance: ADALIMUMAB
     Route: 058
  2. IMURAN [Concomitant]
     Active Substance: AZATHIOPRINE
     Indication: CROHN^S DISEASE
  3. HUMIRA [Suspect]
     Active Substance: ADALIMUMAB
     Indication: CROHN^S DISEASE
     Route: 058
     Dates: start: 2015
  4. HUMIRA [Suspect]
     Active Substance: ADALIMUMAB
     Indication: CROHN^S DISEASE
     Route: 058

REACTIONS (7)
  - Device issue [Unknown]
  - Wrong technique in product usage process [Unknown]
  - Intestinal obstruction [Unknown]
  - Colon operation [Unknown]
  - Gastrointestinal inflammation [Not Recovered/Not Resolved]
  - Postoperative adhesion [Unknown]
  - Injection site pain [Unknown]

NARRATIVE: CASE EVENT DATE: 20190823
